FAERS Safety Report 23041886 (Version 2)
Quarter: 2023Q4

REPORT INFORMATION
  Report Type: Spontaneous
  Country: JP (occurrence: JP)
  Receive Date: 20231007
  Receipt Date: 20231019
  Transmission Date: 20240110
  Serious: Yes (Death, Other)
  Sender: FDA-Public Use
  Company Number: JP-AMGEN-JPNSP2023177252

PATIENT

DRUGS (3)
  1. EVENITY [Suspect]
     Active Substance: ROMOSOZUMAB-AQQG
     Indication: Osteoporosis
     Dosage: UNK
     Route: 065
  2. EVENITY [Suspect]
     Active Substance: ROMOSOZUMAB-AQQG
  3. DENOSUMAB [Suspect]
     Active Substance: DENOSUMAB
     Indication: Osteoporosis
     Dosage: UNK
     Route: 065

REACTIONS (10)
  - Death [Fatal]
  - Pelvic fracture [Unknown]
  - Femur fracture [Unknown]
  - Forearm fracture [Unknown]
  - Lower limb fracture [Unknown]
  - Patella fracture [Unknown]
  - Cardiovascular disorder [Unknown]
  - Adverse event [Unknown]
  - Therapy cessation [Unknown]
  - Hypocalcaemia [Unknown]
